FAERS Safety Report 6634796-5 (Version None)
Quarter: 2010Q1

REPORT INFORMATION
  Report Type: 
  Country: None (occurrence: None)
  Receive Date: 20100315
  Receipt Date: 20100305
  Transmission Date: 20100710
  Serious: Yes (Hospitalization)
  Sender: FDA-Public Use
  Company Number: FR-PFIZER INC-2010028691

PATIENT
  Age: 85 Year
  Sex: Male

DRUGS (16)
  1. TAHOR [Suspect]
     Indication: HYPERTENSION
     Dosage: UNK
     Dates: start: 20090101, end: 20090701
  2. METHOTREXATE SODIUM [Suspect]
     Indication: TEMPORAL ARTERITIS
     Dosage: 15 MG, 1X/DAY
     Dates: start: 20090401, end: 20090701
  3. CORTANCYL [Concomitant]
     Indication: TEMPORAL ARTERITIS
     Dosage: UNK
     Dates: start: 20090101
  4. DIFFU K [Concomitant]
     Indication: MINERAL SUPPLEMENTATION
     Dosage: UNK
     Dates: start: 20090101
  5. SERESTA [Concomitant]
     Indication: ANXIETY DISORDER
     Dosage: UNK
     Dates: start: 20090101
  6. TRANXENE [Concomitant]
     Indication: ANXIETY
     Dosage: UNK
     Dates: start: 20090601
  7. EFFEXOR [Concomitant]
     Indication: DEPRESSION
  8. MEPRONIZINE [Concomitant]
     Indication: INSOMNIA
     Dosage: UNK
  9. XATRAL [Concomitant]
     Indication: BENIGN PROSTATIC HYPERPLASIA
     Dosage: UNK
     Dates: start: 20090601
  10. KARDEGIC [Concomitant]
     Indication: ARTERIOSCLEROSIS
     Dosage: UNK
     Dates: start: 20090101
  11. FIXICAL [Concomitant]
     Indication: CALCIUM DEFICIENCY
     Dosage: UNK
     Dates: start: 20090101
  12. ACTONEL [Concomitant]
     Indication: OSTEOPOROSIS
     Dosage: UNK
     Dates: start: 20090101
  13. LASILIX [Concomitant]
     Indication: HYPERTENSION
     Dosage: UNK
     Dates: start: 20090601, end: 20090701
  14. BECLOMETASONE DIPROPIONATE [Concomitant]
     Indication: ASTHMA
     Dosage: UNK
     Dates: start: 20090601
  15. FORADIL [Concomitant]
     Indication: ASTHMA
     Dosage: UNK
  16. AMLOR [Concomitant]
     Indication: HYPERTENSION
     Dosage: UNK
     Dates: start: 20090601, end: 20090701

REACTIONS (1)
  - AXONAL NEUROPATHY [None]
